FAERS Safety Report 8798705 (Version 2)
Quarter: 2013Q3

REPORT INFORMATION
  Report Type: Report from Study
  Country: US (occurrence: US)
  Receive Date: 20120920
  Receipt Date: 20130711
  Transmission Date: 20140515
  Serious: Yes (Other)
  Sender: FDA-Public Use
  Company Number: US-ELI_LILLY_AND_COMPANY-US201205004178

PATIENT
  Age: 55 Year
  Sex: Female

DRUGS (3)
  1. TERIPARATIDE [Suspect]
     Indication: OSTEOPOROSIS
     Dosage: 20 UG, QD
  2. TERIPARATIDE [Suspect]
  3. OXYGEN [Concomitant]
     Dosage: UNK

REACTIONS (23)
  - Chronic obstructive pulmonary disease [Not Recovered/Not Resolved]
  - Joint stiffness [Unknown]
  - Musculoskeletal stiffness [Unknown]
  - Dizziness [Unknown]
  - Migraine [Unknown]
  - Pain in extremity [Unknown]
  - Muscle spasms [Unknown]
  - Insomnia [Unknown]
  - Vitamin D decreased [Unknown]
  - Blood triglycerides increased [Unknown]
  - High density lipoprotein decreased [Unknown]
  - Blood calcium increased [Unknown]
  - Limb discomfort [Unknown]
  - Mobility decreased [Unknown]
  - Dyspnoea [Unknown]
  - Speech disorder [Unknown]
  - Arthralgia [Unknown]
  - Pain in jaw [Unknown]
  - Toothache [Unknown]
  - Eye pain [Unknown]
  - Oropharyngeal pain [Unknown]
  - Pneumonia [Unknown]
  - Dyspnoea [Unknown]
